FAERS Safety Report 4445398-3 (Version None)
Quarter: 2004Q3

REPORT INFORMATION
  Report Type: 
  Country: None (occurrence: None)
  Receive Date: 20040730
  Receipt Date: 20040517
  Transmission Date: 20050211
  Serious: Yes (Hospitalization)
  Sender: FDA-Public Use
  Company Number: 138750USA

PATIENT
  Age: 50 Year
  Sex: Male

DRUGS (2)
  1. PANCURONIUM BROMIDE [Suspect]
     Dates: start: 20040306, end: 20040306
  2. DILANTIN [Concomitant]

REACTIONS (2)
  - MEDICATION ERROR [None]
  - RESPIRATORY ARREST [None]
